FAERS Safety Report 9239433 (Version 1)
Quarter: 2013Q2

REPORT INFORMATION
  Report Type: Spontaneous
  Country: US (occurrence: US)
  Receive Date: 20130418
  Receipt Date: 20130418
  Transmission Date: 20140414
  Serious: No
  Sender: FDA-Public Use
  Company Number: US-ASTRAZENECA-2013SE22242

PATIENT
  Age: 82 Year
  Sex: Female
  Weight: 62.1 kg

DRUGS (3)
  1. NEXIUM [Suspect]
     Indication: GASTROOESOPHAGEAL REFLUX DISEASE
     Route: 065
     Dates: start: 201204
  2. LOSARTAN POTASSIUM [Concomitant]
     Dates: start: 2012
  3. B12 [Concomitant]

REACTIONS (3)
  - Gastric disorder [Recovering/Resolving]
  - Memory impairment [Not Recovered/Not Resolved]
  - Somnolence [Recovering/Resolving]
